FAERS Safety Report 16220346 (Version 1)
Quarter: 2019Q2

REPORT INFORMATION
  Report Type: Report from Study
  Country: US (occurrence: US)
  Receive Date: 20190420
  Receipt Date: 20190420
  Transmission Date: 20190711
  Serious: Yes (Death, Life-Threatening, Hospitalization)
  Sender: FDA-Public Use
  Company Number: US-TORRENT-00008017

PATIENT
  Age: 63 Year
  Sex: Male

DRUGS (2)
  1. PREGABALIN. [Suspect]
     Active Substance: PREGABALIN
     Indication: SLEEP DISORDER
     Dosage: 90 TABLETS
     Route: 048
  2. TOPIRAMATE. [Suspect]
     Active Substance: TOPIRAMATE
     Indication: SEIZURE
     Dosage: UNKNOWN
     Route: 048

REACTIONS (5)
  - Intentional product misuse [Fatal]
  - Myoclonus [Unknown]
  - Toxicity to various agents [Fatal]
  - Cardiac arrest [Fatal]
  - Hypothermia [Recovering/Resolving]
